FAERS Safety Report 25940653 (Version 1)
Quarter: 2025Q4

REPORT INFORMATION
  Report Type: Spontaneous
  Country: US (occurrence: None)
  Receive Date: 20251017
  Receipt Date: 20251017
  Transmission Date: 20260118
  Serious: Yes (Death)
  Sender: FDA-CTU
  Company Number: None

PATIENT
  Age: 67 Year
  Sex: Male

DRUGS (1)
  1. XCOPRI [Suspect]
     Active Substance: CENOBAMATE
     Dosage: 100 MG/MG DAILY ORAL
     Route: 048
     Dates: start: 20250827, end: 20251011

REACTIONS (6)
  - Vomiting [None]
  - Nausea [None]
  - Intentional dose omission [None]
  - Carbon dioxide increased [None]
  - Haemorrhagic stroke [None]
  - Brain death [None]

NARRATIVE: CASE EVENT DATE: 20251011
